FAERS Safety Report 5697449-6 (Version None)
Quarter: 2008Q2

REPORT INFORMATION
  Report Type: 
  Country: None (occurrence: None)
  Receive Date: 20080407
  Receipt Date: 20080404
  Transmission Date: 20081010
  Serious: Yes (Life-Threatening)
  Sender: FDA-Public Use
  Company Number: PHRM2008FR01182

PATIENT
  Age: 62 Year
  Sex: Male

DRUGS (3)
  1. INSULIN [Suspect]
     Indication: TYPE 1 DIABETES MELLITUS
  2. GLEEVEC [Suspect]
     Indication: CHRONIC MYELOID LEUKAEMIA
     Dosage: 300 MG, QD
     Route: 048
     Dates: start: 20070601
  3. GLEEVEC [Suspect]
     Dosage: 400 MG, QD
     Dates: start: 20080101

REACTIONS (1)
  - HYPOGLYCAEMIA [None]
